FAERS Safety Report 10507261 (Version 1)
Quarter: 2014Q4

REPORT INFORMATION
  Report Type: Spontaneous
  Country: US (occurrence: None)
  Receive Date: 20141008
  Receipt Date: 20141008
  Transmission Date: 20150528
  Serious: Yes (Hospitalization)
  Sender: FDA-Public Use
  Company Number: None

PATIENT
  Age: 74 Year
  Sex: Male
  Weight: 76.8 kg

DRUGS (1)
  1. VANCOMYCIN [Suspect]
     Active Substance: VANCOMYCIN
     Indication: OSTEOMYELITIS
     Dosage: 1000 MG, EVERY DAY, IV?
     Route: 042
     Dates: start: 20140516, end: 20140530

REACTIONS (4)
  - Acute kidney injury [None]
  - Haemoglobin decreased [None]
  - Renal tubular necrosis [None]
  - Nephritis [None]

NARRATIVE: CASE EVENT DATE: 20140530
